FAERS Safety Report 7408720-1 (Version None)
Quarter: 2011Q2

REPORT INFORMATION
  Report Type: 
  Country: None (occurrence: None)
  Receive Date: 20110412
  Receipt Date: 20110406
  Transmission Date: 20111010
  Serious: Yes (Other)
  Sender: FDA-Public Use
  Company Number: US-BRISTOL-MYERS SQUIBB COMPANY-15657208

PATIENT
  Age: 91 Year
  Weight: 45 kg

DRUGS (1)
  1. COUMADIN [Suspect]
     Indication: ARRHYTHMIA

REACTIONS (1)
  - HIP SURGERY [None]
